FAERS Safety Report 4797269-0 (Version None)
Quarter: 2005Q4

REPORT INFORMATION
  Report Type: 
  Country: None (occurrence: None)
  Receive Date: 20051013
  Receipt Date: 20050810
  Transmission Date: 20060501
  Serious: Yes (Other)
  Sender: FDA-Public Use
  Company Number: US-GLAXOSMITHKLINE-A0569695A

PATIENT
  Age: 34 Year
  Sex: Female
  Weight: 77.3 kg

DRUGS (6)
  1. ZYBAN [Suspect]
     Dosage: 150MG TWICE PER DAY
     Route: 048
     Dates: start: 20050507, end: 20050806
  2. FOLIC ACID [Concomitant]
  3. PREDNISONE [Concomitant]
  4. VICODIN [Concomitant]
  5. ZOLOFT [Concomitant]
  6. PLAQUENIL [Concomitant]

REACTIONS (17)
  - AMNESIA [None]
  - ANXIETY [None]
  - ARTHRALGIA [None]
  - BALANCE DISORDER [None]
  - CLUMSINESS [None]
  - CONVULSION [None]
  - DISTURBANCE IN ATTENTION [None]
  - DIZZINESS [None]
  - HEADACHE [None]
  - HYPOAESTHESIA [None]
  - INCREASED TENDENCY TO BRUISE [None]
  - LOSS OF CONSCIOUSNESS [None]
  - MEMORY IMPAIRMENT [None]
  - PAIN IN JAW [None]
  - PARAESTHESIA [None]
  - SLEEP DISORDER [None]
  - VISION BLURRED [None]
